FAERS Safety Report 4875994-0 (Version None)
Quarter: 2005Q4

REPORT INFORMATION
  Report Type: 
  Country: None (occurrence: None)
  Receive Date: 20051207
  Receipt Date: 20050225
  Transmission Date: 20060501
  Serious: Yes (Other)
  Sender: FDA-Public Use
  Company Number: 2005-BP-03447BP

PATIENT
  Age: 77 Year
  Sex: Male
  Weight: 93.89 kg

DRUGS (1)
  1. PERSANTINE [Suspect]
     Indication: CARDIAC STRESS TEST
     Dosage: 52.7 MG (SEE TEXT, 10 MG / 2 ML)
     Dates: start: 20041208

REACTIONS (1)
  - DYSPNOEA [None]
